FAERS Safety Report 4929319-2 (Version None)
Quarter: 2006Q1

REPORT INFORMATION
  Report Type: 
  Country: None (occurrence: None)
  Receive Date: 20060223
  Receipt Date: 20060131
  Transmission Date: 20060701
  Serious: Yes (Hospitalization, Other)
  Sender: FDA-Public Use
  Company Number: US_0508120814

PATIENT
  Age: 49 Year
  Sex: Female
  Weight: 57.1 kg

DRUGS (5)
  1. ZYPREXA [Suspect]
     Indication: DEPRESSION
     Dosage: 2.5 MG,
     Dates: start: 20020101, end: 20030101
  2. HYZAAR [Concomitant]
  3. ALPRAZOLAM [Concomitant]
  4. TOPROL-XL [Concomitant]
  5. STARLIX [Concomitant]

REACTIONS (21)
  - ADRENAL ADENOMA [None]
  - AMNESIA [None]
  - BLOOD TRIGLYCERIDES INCREASED [None]
  - CONFUSIONAL STATE [None]
  - DIABETES MELLITUS NON-INSULIN-DEPENDENT [None]
  - DUODENAL OBSTRUCTION [None]
  - DUODENITIS [None]
  - GALLBLADDER NON-FUNCTIONING [None]
  - GASTRIC ULCER [None]
  - HEADACHE [None]
  - HEPATIC ENZYME INCREASED [None]
  - HYPERNATRAEMIA [None]
  - ILEUS [None]
  - OBSTRUCTION GASTRIC [None]
  - PANCREATIC DUCT DILATATION [None]
  - PANCREATITIS NECROTISING [None]
  - POST GASTRIC SURGERY SYNDROME [None]
  - REFLUX GASTRITIS [None]
  - RENAL IMPAIRMENT [None]
  - SINUSITIS FUNGAL [None]
  - STAPHYLOCOCCAL INFECTION [None]
